FAERS Safety Report 19657805 (Version 2)
Quarter: 2021Q3

REPORT INFORMATION
  Report Type: Spontaneous
  Country: JP (occurrence: JP)
  Receive Date: 20210804
  Receipt Date: 20210816
  Transmission Date: 20211014
  Serious: Yes (Other)
  Sender: FDA-Public Use
  Company Number: JP-BRISTOL-MYERS SQUIBB COMPANY-BMS-2021-075880

PATIENT
  Age: 76 Year
  Sex: Male

DRUGS (8)
  1. PACLITAXEL. [Suspect]
     Active Substance: PACLITAXEL
     Dosage: COURSE 2, DECREASE TO 80%
     Route: 041
  2. OPDIVO [Suspect]
     Active Substance: NIVOLUMAB
     Dosage: COURSE 2, DECREASE TO 80%
     Route: 041
  3. YERVOY [Suspect]
     Active Substance: IPILIMUMAB
     Indication: NON-SMALL CELL LUNG CANCER RECURRENT
     Dosage: COURSE 1
     Route: 041
     Dates: start: 202105
  4. YERVOY [Suspect]
     Active Substance: IPILIMUMAB
     Dosage: COURSE 2, DECREASE TO 80%
     Route: 041
  5. OPDIVO [Suspect]
     Active Substance: NIVOLUMAB
     Indication: NON-SMALL CELL LUNG CANCER RECURRENT
     Dosage: COURSE 1
     Route: 041
     Dates: start: 202105
  6. PACLITAXEL. [Suspect]
     Active Substance: PACLITAXEL
     Indication: NON-SMALL CELL LUNG CANCER RECURRENT
     Dosage: COURSE 1
     Route: 041
     Dates: start: 202105
  7. CARBOPLATIN. [Suspect]
     Active Substance: CARBOPLATIN
     Indication: NON-SMALL CELL LUNG CANCER RECURRENT
     Dosage: COURSE 1
     Route: 065
     Dates: start: 202105
  8. CARBOPLATIN. [Suspect]
     Active Substance: CARBOPLATIN
     Dosage: COURSE 2, DECREASE TO 80%
     Route: 065

REACTIONS (1)
  - Neutropenia [Unknown]

NARRATIVE: CASE EVENT DATE: 202105
